FAERS Safety Report 6696046-3 (Version None)
Quarter: 2010Q2

REPORT INFORMATION
  Report Type: 
  Country: None (occurrence: None)
  Receive Date: 20100426
  Receipt Date: 20100414
  Transmission Date: 20101027
  Serious: Yes (Hospitalization)
  Sender: FDA-Public Use
  Company Number: PHHY2009GB30953

PATIENT
  Sex: Female

DRUGS (2)
  1. CLOZARIL [Suspect]
     Indication: SCHIZOPHRENIA
     Dosage: 500 MG DAILY
     Route: 048
     Dates: start: 19971027
  2. HYOSCINE HBR HYT [Concomitant]
     Indication: SALIVARY HYPERSECRETION
     Dosage: 600 UG, UNK
     Route: 048

REACTIONS (7)
  - BLOOD TEST ABNORMAL [None]
  - HYPOPHAGIA [None]
  - MALAISE [None]
  - MENTAL DISORDER [None]
  - RENAL IMPAIRMENT [None]
  - THERAPY CESSATION [None]
  - URINARY RETENTION [None]
